FAERS Safety Report 5212864-2 (Version None)
Quarter: 2007Q1

REPORT INFORMATION
  Report Type: 
  Country: None (occurrence: None)
  Receive Date: 20070119
  Receipt Date: 20070105
  Transmission Date: 20070707
  Serious: Yes (Death, Hospitalization)
  Sender: FDA-Public Use
  Company Number: PL-AVENTIS-200218670GDDC

PATIENT
  Sex: Female
  Weight: 59 kg

DRUGS (11)
  1. TAXOTERE [Suspect]
     Indication: BREAST CANCER
     Route: 042
     Dates: start: 20020613, end: 20020816
  2. TAXOTERE [Suspect]
  3. TAXOTERE [Suspect]
  4. TAXOTERE [Suspect]
  5. TAXOTERE [Suspect]
  6. TAXOTERE [Suspect]
  7. DOXORUBICIN HCL [Suspect]
     Indication: BREAST CANCER
     Route: 042
     Dates: start: 20020321, end: 20020523
  8. CYCLOPHOSPHAMIDE [Suspect]
     Indication: BREAST CANCER
     Route: 042
     Dates: start: 20020321, end: 20020523
  9. ONDANSETRON [Concomitant]
     Route: 042
     Dates: start: 20020816, end: 20020816
  10. ONDANSETRON [Concomitant]
     Route: 048
     Dates: start: 20020817, end: 20020820
  11. DEXAMETHASONE [Concomitant]
     Route: 048
     Dates: start: 20020815, end: 20020817

REACTIONS (3)
  - ATRIAL FIBRILLATION [None]
  - BREAST CANCER METASTATIC [None]
  - MITRAL VALVE INCOMPETENCE [None]
